FAERS Safety Report 19352203 (Version 3)
Quarter: 2022Q2

REPORT INFORMATION
  Report Type: Spontaneous
  Country: US (occurrence: US)
  Receive Date: 20210601
  Receipt Date: 20220613
  Transmission Date: 20220720
  Serious: Yes (Other)
  Sender: FDA-Public Use
  Company Number: US-PFIZER INC-2021581205

PATIENT
  Age: 59 Year
  Sex: Female
  Weight: 74.376 kg

DRUGS (14)
  1. IBRANCE [Suspect]
     Active Substance: PALBOCICLIB
     Indication: Lobular breast carcinoma in situ
     Dosage: 75 MG, CYCLIC (DAILY FOR 21 DAYS AND 1 WEEK OFF/ 75 MG 21 OF 28 DAYS ORALLY)
     Route: 048
     Dates: start: 201907, end: 20220519
  2. IBRANCE [Suspect]
     Active Substance: PALBOCICLIB
     Dosage: UNK,  CYCLIC (DAILY FOR 14 DAYS AND 2 WEEKS OFF)
     Route: 048
  3. CALCIUM CARBONATE\CHOLECALCIFEROL [Concomitant]
     Active Substance: CALCIUM CARBONATE\CHOLECALCIFEROL
     Dosage: UNK
  4. CLARITIN [Concomitant]
     Active Substance: LORATADINE
     Dosage: UNK
  5. HEARTBURN RELIEF [CIMETIDINE] [Concomitant]
     Dosage: UNK
  6. MINERALS\VITAMINS [Concomitant]
     Active Substance: MINERALS\VITAMINS
     Dosage: UNK
  7. TUMS [Concomitant]
     Active Substance: CALCIUM CARBONATE
     Dosage: UNK
  8. VITAMIN C [Concomitant]
     Active Substance: ASCORBIC ACID
     Dosage: UNK
  9. XANAX [Concomitant]
     Active Substance: ALPRAZOLAM
     Dosage: UNK
  10. ZOMETA [Concomitant]
     Active Substance: ZOLEDRONIC ACID
     Dosage: UNK
  11. LETROZOLE [Concomitant]
     Active Substance: LETROZOLE
     Dosage: UNK
  12. TRAMADOL [Concomitant]
     Active Substance: TRAMADOL
     Dosage: UNK
  13. ACETAMINOPHEN\HYDROCODONE [Concomitant]
     Active Substance: ACETAMINOPHEN\HYDROCODONE
     Dosage: UNK
  14. CALCIUM [Concomitant]
     Active Substance: CALCIUM
     Dosage: UNK

REACTIONS (4)
  - Spinal compression fracture [Unknown]
  - Neutropenia [Not Recovered/Not Resolved]
  - Neoplasm progression [Unknown]
  - Platelet count decreased [Unknown]
